FAERS Safety Report 9296002 (Version 1)
Quarter: 2013Q2

REPORT INFORMATION
  Report Type: Spontaneous
  Country: US (occurrence: None)
  Receive Date: 20130516
  Receipt Date: 20130516
  Transmission Date: 20140414
  Serious: No
  Sender: FDA-Public Use
  Company Number: None

PATIENT
  Age: 46 Year
  Sex: Female

DRUGS (1)
  1. CIMZIA KIT STARTER 6X200MG/ML PFS [Suspect]
     Dosage: INJECT 400MG SUBCUTANEOUSLY AT WEEK 0, 2 AND 4
     Route: 058

REACTIONS (2)
  - Dizziness [None]
  - Nausea [None]
